FAERS Safety Report 15838378 (Version 1)
Quarter: 2019Q1

REPORT INFORMATION
  Report Type: Spontaneous
  Country: DK (occurrence: DK)
  Receive Date: 20190117
  Receipt Date: 20190117
  Transmission Date: 20190417
  Serious: Yes (Disabling)
  Sender: FDA-Public Use
  Company Number: DK-NOVOPROD-641849

PATIENT
  Age: 54 Year
  Sex: Male

DRUGS (1)
  1. OZEMPIC [Suspect]
     Active Substance: SEMAGLUTIDE
     Indication: DIABETES MELLITUS
     Dosage: 0.5 MG, QW
     Route: 058
     Dates: start: 20181028, end: 20181223

REACTIONS (3)
  - Visual impairment [Not Recovered/Not Resolved]
  - Condition aggravated [Not Recovered/Not Resolved]
  - Diabetic retinopathy [Not Recovered/Not Resolved]

NARRATIVE: CASE EVENT DATE: 20181109
